FAERS Safety Report 13523751 (Version 1)
Quarter: 2017Q2

REPORT INFORMATION
  Report Type: Spontaneous
  Country: US (occurrence: US)
  Receive Date: 20170508
  Receipt Date: 20170508
  Transmission Date: 20170830
  Serious: No
  Sender: FDA-Public Use
  Company Number: US-VIFOR (INTERNATIONAL) INC.-VIT-2017-03109

PATIENT
  Sex: Male

DRUGS (20)
  1. ZETIA [Concomitant]
     Active Substance: EZETIMIBE
  2. LEVOTHYROXINE. [Concomitant]
     Active Substance: LEVOTHYROXINE
  3. ULORIC [Concomitant]
     Active Substance: FEBUXOSTAT
  4. ISOSORBIDE. [Concomitant]
     Active Substance: ISOSORBIDE
  5. FENOFIBRATE. [Concomitant]
     Active Substance: FENOFIBRATE
  6. ZANTAC [Concomitant]
     Active Substance: RANITIDINE HYDROCHLORIDE
  7. RANEXA [Concomitant]
     Active Substance: RANOLAZINE
  8. COQ10 [Concomitant]
     Active Substance: UBIDECARENONE
  9. VELTASSA [Suspect]
     Active Substance: PATIROMER
     Indication: HYPERKALAEMIA
     Route: 048
     Dates: start: 20170221
  10. LYRICA [Concomitant]
     Active Substance: PREGABALIN
  11. BYSTOLIC [Concomitant]
     Active Substance: NEBIVOLOL HYDROCHLORIDE
  12. LORATADINE. [Concomitant]
     Active Substance: LORATADINE
  13. PIOGLITAZONE. [Concomitant]
     Active Substance: PIOGLITAZONE
  14. ELIQUIS [Concomitant]
     Active Substance: APIXABAN
  15. IRON [Concomitant]
     Active Substance: IRON
  16. VITAMINS NOS [Concomitant]
     Active Substance: VITAMINS
  17. LIVALO [Concomitant]
     Active Substance: PITAVASTATIN CALCIUM
  18. NITROSTAT [Concomitant]
     Active Substance: NITROGLYCERIN
  19. LANTUS [Concomitant]
     Active Substance: INSULIN GLARGINE
  20. ACETYLSALICYLIC ACID [Concomitant]
     Active Substance: ASPIRIN

REACTIONS (1)
  - Constipation [Not Recovered/Not Resolved]

NARRATIVE: CASE EVENT DATE: 2017
